FAERS Safety Report 8975097 (Version 2)
Quarter: 2013Q2

REPORT INFORMATION
  Report Type: Spontaneous
  Country: US (occurrence: US)
  Receive Date: 20121219
  Receipt Date: 20130606
  Transmission Date: 20140414
  Serious: No
  Sender: FDA-Public Use
  Company Number: US-AMGEN-USASP2012069757

PATIENT
  Age: 78 Year
  Sex: Female
  Weight: 95.69 kg

DRUGS (1)
  1. PROLIA [Suspect]
     Indication: SENILE OSTEOPOROSIS
     Dosage: 60 MG, ONE TIME DOSE
     Route: 030
     Dates: start: 20120203, end: 20120203

REACTIONS (3)
  - Pain in jaw [Not Recovered/Not Resolved]
  - Incorrect route of drug administration [Unknown]
  - Temporomandibular joint syndrome [Not Recovered/Not Resolved]
